FAERS Safety Report 18035304 (Version 1)
Quarter: 2020Q3

REPORT INFORMATION
  Report Type: Spontaneous
  Country: US (occurrence: US)
  Receive Date: 20200717
  Receipt Date: 20200717
  Transmission Date: 20201103
  Serious: Yes (Hospitalization)
  Sender: FDA-Public Use
  Company Number: None

PATIENT
  Age: 90 Year
  Sex: Male
  Weight: 90 kg

DRUGS (1)
  1. METRONIDAZOLE. [Suspect]
     Active Substance: METRONIDAZOLE
     Indication: ABDOMINAL INFECTION
     Dates: start: 20200706, end: 20200709

REACTIONS (2)
  - Neuropsychiatric symptoms [None]
  - Pharyngeal swelling [None]

NARRATIVE: CASE EVENT DATE: 20200709
